FAERS Safety Report 7933401-5 (Version None)
Quarter: 2011Q4

REPORT INFORMATION
  Report Type: 
  Country: None (occurrence: None)
  Receive Date: 20111116
  Receipt Date: 20111106
  Transmission Date: 20120403
  Serious: Yes (Other)
  Sender: FDA-Public Use
  Company Number: 2011SP052222

PATIENT
  Sex: Female

DRUGS (2)
  1. PEG-INTRON [Suspect]
     Indication: HEPATITIS C
     Dates: start: 20050101
  2. RIBAVIRIN [Suspect]
     Indication: HEPATITIS C
     Dates: start: 20050101

REACTIONS (5)
  - DISEASE RECURRENCE [None]
  - WRIST FRACTURE [None]
  - HEPATIC NEOPLASM MALIGNANT [None]
  - PAIN [None]
  - WEIGHT INCREASED [None]
